FAERS Safety Report 6696493-X (Version None)
Quarter: 2010Q2

REPORT INFORMATION
  Report Type: 
  Country: None (occurrence: None)
  Receive Date: 20100426
  Receipt Date: 20100402
  Transmission Date: 20101027
  Serious: Yes (Other)
  Sender: FDA-Public Use
  Company Number: A0843755A

PATIENT
  Age: 35 Year
  Sex: Male
  Weight: 88.2 kg

DRUGS (2)
  1. ZOFRAN [Suspect]
     Indication: NAUSEA
     Dosage: 8MG THREE TIMES PER DAY
     Route: 048
     Dates: start: 20100127
  2. RADIATION THERAPY [Concomitant]

REACTIONS (3)
  - BLINDNESS TRANSIENT [None]
  - CONSTIPATION [None]
  - HEADACHE [None]
